FAERS Safety Report 8297590-8 (Version None)
Quarter: 2012Q2

REPORT INFORMATION
  Report Type: 
  Country: None (occurrence: None)
  Receive Date: 20120419
  Receipt Date: 20120416
  Transmission Date: 20120825
  Serious: Yes (Death)
  Sender: FDA-Public Use
  Company Number: PHHY2012CA021030

PATIENT
  Sex: Male

DRUGS (6)
  1. ZOMETA [Suspect]
     Indication: PROSTATE CANCER
     Dosage: 4 MG, QMO
     Route: 042
     Dates: start: 20120208
  2. VITAMIN D [Concomitant]
  3. DEXAMETHASONE [Concomitant]
  4. CALCIUM CARBONATE [Concomitant]
  5. ASCORBIC ACID [Concomitant]
  6. ONDANSETRON [Concomitant]

REACTIONS (6)
  - APPLICATION SITE HAEMATOMA [None]
  - CONTUSION [None]
  - NAUSEA [None]
  - PNEUMONIA [None]
  - SEPSIS [None]
  - BONE PAIN [None]
